FAERS Safety Report 14482077 (Version 1)
Quarter: 2018Q1

REPORT INFORMATION
  Report Type: Spontaneous
  Country: JP (occurrence: JP)
  Receive Date: 20180202
  Receipt Date: 20180202
  Transmission Date: 20180509
  Serious: Yes (Hospitalization)
  Sender: FDA-Public Use
  Company Number: JP-NOVAST LABORATORIES, LTD-JP-2018NOV000012

PATIENT
  Age: 48 Year
  Sex: Male
  Weight: 63.6 kg

DRUGS (6)
  1. LOXOPROFEN [Concomitant]
     Active Substance: LOXOPROFEN
     Indication: ARTHRALGIA
  2. POULTICE [Concomitant]
     Indication: MYALGIA
     Dosage: UNK
  3. LOXOPROFEN [Concomitant]
     Active Substance: LOXOPROFEN
     Indication: MYALGIA
     Dosage: UNK
  4. BUTALBITAL, ACETAMINOPHEN, AND CAFFEINE [Suspect]
     Active Substance: ACETAMINOPHEN\BUTALBITAL\CAFFEINE
     Indication: NASOPHARYNGITIS
     Dosage: 300 MG, TID
  5. LOXOPROFEN [Concomitant]
     Active Substance: LOXOPROFEN
     Indication: MUSCULOSKELETAL PAIN
  6. MINOCYCLINE [Concomitant]
     Active Substance: MINOCYCLINE\MINOCYCLINE HYDROCHLORIDE
     Indication: NASOPHARYNGITIS
     Dosage: 100 MG, BID

REACTIONS (1)
  - Tubulointerstitial nephritis [Recovering/Resolving]
